FAERS Safety Report 7763618-4 (Version None)
Quarter: 2011Q3

REPORT INFORMATION
  Report Type: 
  Country: None (occurrence: None)
  Receive Date: 20110921
  Receipt Date: 20110908
  Transmission Date: 20111222
  Serious: Yes (Other)
  Sender: FDA-Public Use
  Company Number: DE-AMGEN-DEUSP2011045092

PATIENT
  Age: 51 Year
  Sex: Female
  Weight: 62 kg

DRUGS (2)
  1. ENBREL [Suspect]
     Indication: PSORIASIS
     Dosage: 50 MG,EVERY TWO WEEKS
     Route: 058
     Dates: start: 20080901, end: 20110812
  2. MICARDIS [Concomitant]
     Indication: HYPERTENSION
     Dosage: UNKNOWN DOSE FOR MORE THAT FIVE YEARS

REACTIONS (4)
  - URTICARIA [None]
  - PYREXIA [None]
  - RENAL PAIN [None]
  - NEPHROPATHY [None]
